FAERS Safety Report 26125193 (Version 1)
Quarter: 2025Q4

REPORT INFORMATION
  Report Type: Spontaneous
  Country: GB (occurrence: GB)
  Receive Date: 20251205
  Receipt Date: 20251205
  Transmission Date: 20260118
  Serious: Yes (Other)
  Sender: SANDOZ
  Company Number: None

PATIENT
  Age: 58 Year
  Sex: Male
  Weight: 173 kg

DRUGS (5)
  1. AMLODIPINE [Suspect]
     Active Substance: AMLODIPINE BESYLATE
     Indication: Ill-defined disorder
     Route: 065
     Dates: start: 20251121
  2. CINACALCET [Concomitant]
     Active Substance: CINACALCET
     Indication: Ill-defined disorder
     Dosage: TWICE A DAY ON MON, WED, FRI ONLY (AMBER DRUG W...
     Route: 065
     Dates: start: 20251015
  3. INDAPAMIDE [Concomitant]
     Active Substance: INDAPAMIDE
     Indication: Ill-defined disorder
     Dosage: TAKE ONE EACH MORNING (SICK DAY RULES APPLY)
     Route: 065
     Dates: start: 20251121
  4. LOSARTAN [Concomitant]
     Active Substance: LOSARTAN
     Indication: Ill-defined disorder
     Dosage: TAKE ONE DAILY
     Route: 065
     Dates: start: 20241202
  5. PREGABALIN [Concomitant]
     Active Substance: PREGABALIN
     Indication: Ill-defined disorder
     Dosage: TAKE  ONE  CAPSULE  THREE  TIMES DAILY
     Route: 065
     Dates: start: 20240809

REACTIONS (1)
  - Thrombosis [Recovered/Resolved]

NARRATIVE: CASE EVENT DATE: 20251121
